FAERS Safety Report 18686618 (Version 2)
Quarter: 2022Q3

REPORT INFORMATION
  Report Type: Spontaneous
  Country: CA (occurrence: CA)
  Receive Date: 20201231
  Receipt Date: 20220712
  Transmission Date: 20221026
  Serious: Yes (Other)
  Sender: FDA-Public Use
  Company Number: CA-GLAXOSMITHKLINE-CA2020GSK251073

PATIENT

DRUGS (3)
  1. AVANDIA [Suspect]
     Active Substance: ROSIGLITAZONE MALEATE
     Indication: Diabetes mellitus
     Dosage: 4 MG, QD
     Route: 048
     Dates: start: 200005, end: 20070619
  2. AVANDIA [Suspect]
     Active Substance: ROSIGLITAZONE MALEATE
     Dosage: 8 MG, QD
     Route: 048
     Dates: start: 20030313
  3. AVANDIA [Suspect]
     Active Substance: ROSIGLITAZONE MALEATE
     Dosage: 4 MG, BID
     Route: 048
     Dates: start: 20040128

REACTIONS (11)
  - Cardiac failure congestive [Unknown]
  - Myocardial ischaemia [Unknown]
  - Mitral valve incompetence [Unknown]
  - Cardiomyopathy [Unknown]
  - Cardiac failure [Unknown]
  - Cardiac disorder [Unknown]
  - Chest pain [Unknown]
  - Sinus tachycardia [Unknown]
  - Defect conduction intraventricular [Unknown]
  - Left atrial enlargement [Unknown]
  - Cardiac murmur [Unknown]
